FAERS Safety Report 19056009 (Version 1)
Quarter: 2021Q1

REPORT INFORMATION
  Report Type: Report from Study
  Country: US (occurrence: US)
  Receive Date: 20210324
  Receipt Date: 20210324
  Transmission Date: 20210420
  Serious: Yes (Hospitalization, Other)
  Sender: FDA-Public Use
  Company Number: US-TAKEDA-US-002050

PATIENT
  Age: 49 Year
  Sex: Female
  Weight: 55 kg

DRUGS (18)
  1. TEDUGLUTIDE [Suspect]
     Active Substance: TEDUGLUTIDE
     Indication: SHORT-BOWEL SYNDROME
     Dosage: 2.8 MG, 1X/DAY:QD
     Route: 058
     Dates: start: 20131020, end: 20150202
  2. TEDUGLUTIDE [Suspect]
     Active Substance: TEDUGLUTIDE
     Dosage: 2.8 MG, 3 DAYS PER WEEK
     Route: 058
     Dates: start: 20150202
  3. KETAMINE HCL 100% [Concomitant]
     Indication: PAIN
     Dosage: 100 DF, 1X/DAY:QD
     Route: 061
     Dates: start: 20140711
  4. TEDUGLUTIDE [Suspect]
     Active Substance: TEDUGLUTIDE
     Indication: SHORT-BOWEL SYNDROME
     Dosage: 2.8 MG, 1X/DAY:QD
     Route: 058
     Dates: start: 20131020, end: 20150202
  5. MULTIVITAMIN                       /00097801/ [Concomitant]
     Active Substance: VITAMINS
     Indication: PROPHYLAXIS
     Dosage: UNK, 1X/DAY:QD
     Route: 048
     Dates: start: 20140711
  6. TEDUGLUTIDE [Suspect]
     Active Substance: TEDUGLUTIDE
     Dosage: 2.8 MG, 3 DAYS PER WEEK
     Route: 058
     Dates: start: 20150202
  7. MILK THISTLE PLUS                  /08512201/ [Concomitant]
     Indication: PHYTOTHERAPY
     Dosage: UNK, 1X/DAY:QD
     Route: 048
     Dates: start: 20140711
  8. TEDUGLUTIDE [Suspect]
     Active Substance: TEDUGLUTIDE
     Indication: SHORT-BOWEL SYNDROME
     Dosage: 2.8 MG, 1X/DAY:QD
     Route: 058
     Dates: start: 20131020, end: 20150202
  9. TPN [Concomitant]
     Active Substance: AMINO ACIDS\DEXTROSE\ELECTROLYTES NOS\SOYBEAN OIL
     Indication: NUTRITIONAL SUPPLEMENTATION
     Dosage: 1.5 L, TWO DAYS A WEEK
     Dates: start: 20141231, end: 20150406
  10. TPN [Concomitant]
     Active Substance: AMINO ACIDS\DEXTROSE\ELECTROLYTES NOS\SOYBEAN OIL
     Dosage: 1.1 L, 3 DAYS PER WEEK
     Dates: start: 20150522, end: 20151006
  11. TPN [Concomitant]
     Active Substance: AMINO ACIDS\DEXTROSE\ELECTROLYTES NOS\SOYBEAN OIL
     Dosage: 1.5 L, 1X/DAY:QD
     Dates: start: 20150309, end: 20150310
  12. LOPERAMIDE [Concomitant]
     Active Substance: LOPERAMIDE
     Indication: PRODUCT USED FOR UNKNOWN INDICATION
     Dosage: 2 MG, 3X/DAY:TID
     Route: 048
     Dates: start: 20150311, end: 20150311
  13. TEDUGLUTIDE [Suspect]
     Active Substance: TEDUGLUTIDE
     Indication: SHORT-BOWEL SYNDROME
     Dosage: 2.8 MG, 1X/DAY:QD
     Route: 058
     Dates: start: 20131020, end: 20150202
  14. TEDUGLUTIDE [Suspect]
     Active Substance: TEDUGLUTIDE
     Dosage: 2.8 MG, 3 DAYS PER WEEK
     Route: 058
     Dates: start: 20150202
  15. TPN [Concomitant]
     Active Substance: AMINO ACIDS\DEXTROSE\ELECTROLYTES NOS\SOYBEAN OIL
     Dosage: 0.78 L,  5 DAYS PER WEEK
     Dates: start: 20150407, end: 20150521
  16. PREVACID [Concomitant]
     Active Substance: LANSOPRAZOLE
     Indication: GASTROOESOPHAGEAL REFLUX DISEASE
     Dosage: 30 MILLIGRAM
     Route: 048
     Dates: start: 20130124
  17. IMMUNOGLOBULIN                     /00025201/ [Concomitant]
     Active Substance: HUMAN IMMUNOGLOBULIN G
     Indication: MYASTHENIC SYNDROME
     Dosage: UNK, AS REQ^D
     Route: 042
     Dates: start: 20150223, end: 20150615
  18. TEDUGLUTIDE [Suspect]
     Active Substance: TEDUGLUTIDE
     Dosage: 2.8 MG, 3 DAYS PER WEEK
     Route: 058
     Dates: start: 20150202

REACTIONS (3)
  - Streptococcal infection [Recovered/Resolved]
  - Vascular device infection [Recovered/Resolved]
  - Bacteraemia [Recovered/Resolved]

NARRATIVE: CASE EVENT DATE: 20150309
